FAERS Safety Report 5744016-1 (Version None)
Quarter: 2008Q2

REPORT INFORMATION
  Report Type: 
  Country: None (occurrence: None)
  Receive Date: 20080520
  Receipt Date: 20080515
  Transmission Date: 20081010
  Serious: Yes (Life-Threatening, Hospitalization)
  Sender: FDA-Public Use
  Company Number: US-NOVOPROD-275311

PATIENT
  Sex: Male

DRUGS (2)
  1. NORDITROPIN NORDIFLEX [Suspect]
     Indication: GROWTH HORMONE DEFICIENCY
     Dosage: UNK
     Route: 058
     Dates: start: 20050606, end: 20080429
  2. FLOVENT [Concomitant]
     Indication: BRONCHIAL HYPERREACTIVITY
     Route: 055

REACTIONS (2)
  - PNEUMONIA ASPIRATION [None]
  - SLEEP APNOEA SYNDROME [None]
